FAERS Safety Report 4628149-9 (Version None)
Quarter: 2005Q2

REPORT INFORMATION
  Report Type: 
  Country: None (occurrence: None)
  Receive Date: 20050401
  Receipt Date: 20050329
  Transmission Date: 20051028
  Serious: Yes (Death)
  Sender: FDA-Public Use
  Company Number: 05-03-0506

PATIENT
  Age: 47 Year
  Sex: Male

DRUGS (1)
  1. CLOZAPINE [Suspect]
     Dosage: 400-500MG QD ORAL
     Route: 048
     Dates: start: 19981001, end: 20050301

REACTIONS (1)
  - MYOCARDIAL INFARCTION [None]
